FAERS Safety Report 7343801-2 (Version None)
Quarter: 2011Q1

REPORT INFORMATION
  Report Type: 
  Country: None (occurrence: None)
  Receive Date: 20110310
  Receipt Date: 20110303
  Transmission Date: 20110831
  Serious: Yes (Other)
  Sender: FDA-Public Use
  Company Number: BR-ROCHE-714016

PATIENT
  Sex: Male
  Weight: 75 kg

DRUGS (11)
  1. TOCILIZUMAB [Suspect]
     Dosage: SECOND INFUSION
     Route: 042
     Dates: start: 20100609
  2. FOLIC ACID [Concomitant]
  3. OMEPRAZOLE [Concomitant]
  4. SELOZOK [Concomitant]
  5. METICORTEN [Concomitant]
     Dosage: DOSE REPORTED AS 30 MG IN ADDITIONAL INFO. SECTION
  6. DICLOFENAC [Concomitant]
  7. METHOTREXATE [Concomitant]
  8. TOCILIZUMAB [Suspect]
     Indication: RHEUMATOID ARTHRITIS
     Dosage: FORM: INFUSION
     Route: 042
     Dates: start: 20100501
  9. RITUXIMAB [Suspect]
     Dosage: FORM:INFUSION
     Route: 042
     Dates: start: 20100601, end: 20110223
  10. ENALAPRIL MALEATE [Concomitant]
  11. TOCILIZUMAB [Suspect]
     Dosage: THIRD INFUSION
     Route: 042
     Dates: start: 20100709, end: 20100709

REACTIONS (19)
  - LARYNGEAL OEDEMA [None]
  - ERYTHEMA MULTIFORME [None]
  - PAINFUL RESPIRATION [None]
  - PRURITUS GENERALISED [None]
  - CYANOSIS [None]
  - SKIN DISCOLOURATION [None]
  - PRURITUS [None]
  - RASH [None]
  - TACHYCARDIA [None]
  - WEIGHT DECREASED [None]
  - OCULAR HYPERAEMIA [None]
  - WEIGHT INCREASED [None]
  - FEELING ABNORMAL [None]
  - ANAPHYLACTIC REACTION [None]
  - DISCOMFORT [None]
  - EYE PRURITUS [None]
  - PYREXIA [None]
  - CUSHING'S SYNDROME [None]
  - ERYTHEMA [None]
